FAERS Safety Report 23706714 (Version 3)
Quarter: 2024Q2

REPORT INFORMATION
  Report Type: Spontaneous
  Country: US (occurrence: US)
  Receive Date: 20240404
  Receipt Date: 20240624
  Transmission Date: 20240716
  Serious: Yes (Hospitalization, Other)
  Sender: FDA-Public Use
  Company Number: US-PFIZER INC-PV202400044052

PATIENT
  Age: 64 Year
  Sex: Female

DRUGS (2)
  1. EUCRISA [Suspect]
     Active Substance: CRISABOROLE
     Dosage: 60 G
     Route: 061
  2. OTEZLA [Suspect]
     Active Substance: APREMILAST
     Dosage: UNK

REACTIONS (1)
  - Sepsis [Unknown]
